FAERS Safety Report 8155085-6 (Version None)
Quarter: 2012Q1

REPORT INFORMATION
  Report Type: 
  Country: None (occurrence: None)
  Receive Date: 20120221
  Receipt Date: 20120217
  Transmission Date: 20120608
  Serious: Yes (Death)
  Sender: FDA-Public Use
  Company Number: SE-B.I. PHARMACEUTICALS,INC./RIDGEFIELD-2012-SW-00130SW

PATIENT
  Sex: Male

DRUGS (5)
  1. PRADAXA [Suspect]
     Indication: THROMBOSIS PROPHYLAXIS
     Dates: start: 20120201, end: 20120213
  2. OMEPRAZOLE [Concomitant]
  3. PAPAVERIN [Concomitant]
  4. HUMALOG [Concomitant]
     Dosage: STRENGTH: LOW DOSE
  5. NOVORAPID [Concomitant]

REACTIONS (4)
  - VENTRICULAR FIBRILLATION [None]
  - HAEMOGLOBIN DECREASED [None]
  - FAECES DISCOLOURED [None]
  - PALLOR [None]
